FAERS Safety Report 12268900 (Version 1)
Quarter: 2016Q2

REPORT INFORMATION
  Report Type: Spontaneous
  Country: CA (occurrence: CA)
  Receive Date: 20160414
  Receipt Date: 20160414
  Transmission Date: 20160815
  Serious: No
  Sender: FDA-Public Use
  Company Number: CA-LPDUSPRD-20150782

PATIENT
  Age: 47 Year
  Sex: Female

DRUGS (1)
  1. DEXIRON (IRON DEXTRAN INJECTION, USP) (0134C) [Suspect]
     Active Substance: IRON DEXTRAN
     Dosage: 1.0 DOSAGE FORM, ONCE
     Route: 030

REACTIONS (2)
  - Urticaria [Unknown]
  - Pruritus [Unknown]
